FAERS Safety Report 8298985-9 (Version None)
Quarter: 2012Q2

REPORT INFORMATION
  Report Type: 
  Country: None (occurrence: None)
  Receive Date: 20120419
  Receipt Date: 20120418
  Transmission Date: 20120825
  Serious: No
  Sender: FDA-Public Use
  Company Number: US-B.I. PHARMACEUTICALS,INC./RIDGEFIELD-2012-BP-02669BP

PATIENT
  Age: 79 Year
  Sex: Male

DRUGS (11)
  1. LOSARTAN [Concomitant]
  2. MS OXIDE [Concomitant]
  3. PRADAXA [Suspect]
     Indication: ATRIAL FIBRILLATION
     Dosage: 300 MG
     Route: 048
     Dates: start: 20120127
  4. GLYBURIDE [Concomitant]
     Indication: TYPE 2 DIABETES MELLITUS
  5. METOPROLOL TARTRATE [Concomitant]
  6. SPIRONOLACTONE [Concomitant]
  7. ASPIRIN [Concomitant]
  8. FUROSEMIDE [Concomitant]
  9. VITAMIN B6 [Concomitant]
  10. XALATAN [Concomitant]
  11. POTASSIUM [Concomitant]

REACTIONS (4)
  - ERUCTATION [None]
  - DECREASED APPETITE [None]
  - DYSPEPSIA [None]
  - ABDOMINAL DISCOMFORT [None]
